FAERS Safety Report 8374424-4 (Version None)
Quarter: 2012Q2

REPORT INFORMATION
  Report Type: 
  Country: None (occurrence: None)
  Receive Date: 20120521
  Receipt Date: 20120511
  Transmission Date: 20120825
  Serious: Yes (Other)
  Sender: FDA-Public Use
  Company Number: JP-VERTEX PHARMACEUTICALS INC.-AE-2012-004790

PATIENT
  Age: 59 Year
  Sex: Female

DRUGS (21)
  1. TELAVIC (TELAPREVIR) [Suspect]
     Indication: HEPATITIS C
     Route: 048
     Dates: start: 20120213, end: 20120406
  2. TELAVIC (TELAPREVIR) [Suspect]
     Route: 048
     Dates: start: 20120407, end: 20120411
  3. ACETAMINOPHEN [Concomitant]
     Route: 048
     Dates: start: 20120301
  4. PROCHLORPERAZINE [Concomitant]
     Route: 048
     Dates: start: 20120322
  5. PROCHLORPERAZINE [Concomitant]
     Route: 048
     Dates: end: 20120412
  6. GLYCYRON [Concomitant]
     Route: 048
  7. DIOVAN [Concomitant]
     Route: 048
  8. MOTILIUM [Concomitant]
     Route: 048
     Dates: start: 20120217, end: 20120301
  9. RABEPRAZOLE SODIUM [Concomitant]
     Route: 048
     Dates: start: 20120301
  10. RIBAVIRIN [Concomitant]
     Indication: HEPATITIS C
     Route: 048
     Dates: start: 20120213, end: 20120322
  11. RIBAVIRIN [Concomitant]
     Route: 048
     Dates: start: 20120323, end: 20120329
  12. MOTILIUM [Concomitant]
     Route: 048
     Dates: end: 20120412
  13. LANSOPRAZOLE [Concomitant]
     Route: 048
     Dates: start: 20120223, end: 20120301
  14. TELAVIC (TELAPREVIR) [Suspect]
     Route: 048
     Dates: start: 20120412, end: 20120419
  15. RIBAVIRIN [Concomitant]
     Route: 048
     Dates: start: 20120329, end: 20120419
  16. URSO 250 [Concomitant]
     Route: 048
  17. ACETAMINOPHEN [Concomitant]
     Route: 048
     Dates: start: 20120414, end: 20120419
  18. RABEPRAZOLE SODIUM [Concomitant]
     Route: 048
     Dates: end: 20120412
  19. RIZE [Concomitant]
     Route: 048
     Dates: start: 20120414, end: 20120419
  20. PEGINTERFERON ALFA-2B [Concomitant]
     Indication: HEPATITIS C
     Route: 051
     Dates: start: 20120213, end: 20120412
  21. FAMOTIDINE [Concomitant]
     Route: 048
     Dates: start: 20120216, end: 20120223

REACTIONS (1)
  - SKIN EXFOLIATION [None]
